FAERS Safety Report 16408897 (Version 3)
Quarter: 2021Q3

REPORT INFORMATION
  Report Type: Spontaneous
  Country: US (occurrence: US)
  Receive Date: 20190610
  Receipt Date: 20210816
  Transmission Date: 20211014
  Serious: Yes (Other)
  Sender: FDA-Public Use
  Company Number: US-ELI_LILLY_AND_COMPANY-US201906003664

PATIENT
  Sex: Male

DRUGS (13)
  1. HUMALOG [Suspect]
     Active Substance: INSULIN LISPRO
     Indication: DIABETES MELLITUS
     Dosage: 5 UNITS IF HIS BLOOD SUGAR IS AT 200, 8 UNITS IF IT IS AT 300 AND 10 UNITS IF IT IS AT 400
     Route: 058
  2. METFORMIN [Concomitant]
     Active Substance: METFORMIN HYDROCHLORIDE
     Indication: DIABETES MELLITUS
     Dosage: 1000 MG, BID
  3. HUMALOG MIX75/25 [Suspect]
     Active Substance: INSULIN LISPRO
     Dosage: UNK UNK, UNKNOWN
     Route: 065
  4. CLINDAMYCIN. [Concomitant]
     Active Substance: CLINDAMYCIN
     Indication: LOCALISED INFECTION
     Dosage: 300 MG, TID
  5. HUMALOG MIX75/25 [Suspect]
     Active Substance: INSULIN LISPRO
     Indication: DIABETES MELLITUS
     Dosage: UNK UNK, UNKNOWN
     Route: 065
  6. HUMALOG MIX75/25 [Suspect]
     Active Substance: INSULIN LISPRO
     Dosage: 28?29 U, BID
     Route: 058
  7. HUMALOG [Suspect]
     Active Substance: INSULIN LISPRO
     Dosage: 5 UNITS IF HIS BLOOD SUGAR IS AT 200, 8 UNITS IF IT IS AT 300 AND 10 UNITS IF IT IS AT 400
     Route: 058
  8. HUMALOG [Suspect]
     Active Substance: INSULIN LISPRO
     Indication: DIABETES MELLITUS
     Dosage: 5 UNITS IF HIS BLOOD SUGAR IS AT 200, 8 UNITS IF IT IS AT 300 AND 10 UNITS IF IT IS AT 400
     Route: 058
  9. HUMALOG MIX75/25 [Suspect]
     Active Substance: INSULIN LISPRO
     Indication: DIABETES MELLITUS
     Dosage: UNK UNK, UNKNOWN
     Route: 065
  10. HUMALOG MIX75/25 [Suspect]
     Active Substance: INSULIN LISPRO
     Dosage: UNK UNK, UNKNOWN
     Route: 065
  11. HUMALOG [Suspect]
     Active Substance: INSULIN LISPRO
     Dosage: 5 UNITS IF HIS BLOOD SUGAR IS AT 200, 8 UNITS IF IT IS AT 300 AND 10 UNITS IF IT IS AT 400
     Route: 058
  12. HUMALOG MIX75/25 [Suspect]
     Active Substance: INSULIN LISPRO
     Dosage: UNK UNK, UNKNOWN
     Route: 065
  13. HUMALOG MIX75/25 [Suspect]
     Active Substance: INSULIN LISPRO
     Dosage: 28?29 U, BID
     Route: 058

REACTIONS (10)
  - Localised infection [Recovering/Resolving]
  - Blood glucose increased [Not Recovered/Not Resolved]
  - Blood glucose abnormal [Unknown]
  - Dizziness [Unknown]
  - Visual impairment [Not Recovered/Not Resolved]
  - Dehydration [Not Recovered/Not Resolved]
  - Vertigo [Unknown]
  - Pollakiuria [Unknown]
  - Peripheral swelling [Recovering/Resolving]
  - Blood glucose decreased [Unknown]
